FAERS Safety Report 5284823-5 (Version None)
Quarter: 2007Q1

REPORT INFORMATION
  Report Type: 
  Country: None (occurrence: None)
  Receive Date: 20070328
  Receipt Date: 20070321
  Transmission Date: 20070707
  Serious: Yes (Disabling)
  Sender: FDA-Public Use
  Company Number: 2006-148394-NL

PATIENT
  Age: 28 Year
  Sex: Female

DRUGS (1)
  1. ETONOGESTREL [Suspect]
     Dosage: DF
     Dates: start: 20060101, end: 20060912

REACTIONS (4)
  - MEDIAN NERVE LESION [None]
  - PAIN IN EXTREMITY [None]
  - PARAESTHESIA [None]
  - PROCEDURAL PAIN [None]
